FAERS Safety Report 7864153-5 (Version None)
Quarter: 2011Q4

REPORT INFORMATION
  Report Type: 
  Country: None (occurrence: None)
  Receive Date: 20111028
  Receipt Date: 20111019
  Transmission Date: 20120403
  Serious: Yes (Other)
  Sender: FDA-Public Use
  Company Number: CN-JNJFOC-20111008812

PATIENT
  Age: 6 Year
  Sex: Male
  Weight: 35 kg

DRUGS (1)
  1. KETOCONAZOLE [Suspect]
     Indication: TINEA PEDIS
     Route: 061
     Dates: start: 20111013, end: 20111014

REACTIONS (1)
  - HENOCH-SCHONLEIN PURPURA [None]
